FAERS Safety Report 5129198-7 (Version None)
Quarter: 2006Q4

REPORT INFORMATION
  Report Type: 
  Country: None (occurrence: None)
  Receive Date: 20061012
  Receipt Date: 20061002
  Transmission Date: 20070319
  Serious: Yes (Life-Threatening, Hospitalization)
  Sender: FDA-Public Use
  Company Number: VISP-PR-0607S-0465

PATIENT
  Age: 51 Year
  Sex: Female
  Weight: 90.7194 kg

DRUGS (13)
  1. VISIPAQUE [Suspect]
     Indication: SEPSIS
     Dosage: 100 ML, SINGLE DOSE, I.V.
     Route: 042
     Dates: start: 20060629, end: 20060629
  2. DILANTIN [Concomitant]
  3. MEDROL [Concomitant]
  4. SYNTHROID [Concomitant]
  5. NORVASC [Concomitant]
  6. HYDRALAZINE HCL [Concomitant]
  7. COUMADIN [Concomitant]
  8. FLAGYL [Concomitant]
  9. NEXIUM [Concomitant]
  10. ALBUTEROL SPIROS [Concomitant]
  11. PANADEINE CO (TYLENOL #3) [Concomitant]
  12. BENADRYL [Concomitant]
  13. PEPCID [Concomitant]

REACTIONS (1)
  - STEVENS-JOHNSON SYNDROME [None]
